FAERS Safety Report 7582215-7 (Version None)
Quarter: 2011Q2

REPORT INFORMATION
  Report Type: 
  Country: None (occurrence: None)
  Receive Date: 20110622
  Receipt Date: 20110606
  Transmission Date: 20111010
  Serious: Yes (Hospitalization)
  Sender: FDA-Public Use
  Company Number: DSA_46891_2011

PATIENT
  Age: 53 Year
  Sex: Male

DRUGS (8)
  1. ENALAPRIL MALEATE [Suspect]
     Indication: PRODUCT USED FOR UNKNOWN INDICATION
     Dosage: 5 MG (DAILY DOSE UNSPECIFIED), ORAL
     Route: 048
  2. SPIRONOLACTONE [Concomitant]
  3. DIGOXIN [Concomitant]
  4. ALLOPURINOL [Concomitant]
  5. CLOPIDOGREL [Concomitant]
  6. FUROSEMIDE [Concomitant]
  7. NITROGLYCERIN [Concomitant]
  8. ANTIDEPRESSANTS [Concomitant]

REACTIONS (14)
  - PITUITARY HAEMORRHAGE [None]
  - FATIGUE [None]
  - OEDEMA PERIPHERAL [None]
  - BUNDLE BRANCH BLOCK [None]
  - RESPIRATORY FAILURE [None]
  - MALAISE [None]
  - RENAL FAILURE CHRONIC [None]
  - SHOCK [None]
  - ASTHENIA [None]
  - GAIT DISTURBANCE [None]
  - CEREBROVASCULAR ACCIDENT [None]
  - HEADACHE [None]
  - HYPOXIA [None]
  - ASCITES [None]
